FAERS Safety Report 8870214 (Version 1)
Quarter: 2012Q4

REPORT INFORMATION
  Report Type: 
  Country: US (occurrence: US)
  Receive Date: 20121026
  Receipt Date: 20121026
  Transmission Date: 20130627
  Serious: No
  Sender: FDA-Public Use
  Company Number: US-AMGEN-USASP2012043768

PATIENT
  Age: 54 Year
  Sex: Female

DRUGS (5)
  1. ENBREL [Suspect]
     Indication: RHEUMATOID ARTHRITIS
     Dosage: 50 mg, qwk
     Dates: start: 2003
  2. ENBREL [Suspect]
     Indication: OSTEOARTHRITIS
  3. PLAQUENIL                          /00072602/ [Concomitant]
     Dosage: 1 mg, qd
     Dates: start: 201202
  4. METHOTREXATE [Concomitant]
     Dosage: 1 mg, qwk
     Dates: start: 2001
  5. RITUXAN [Concomitant]
     Indication: RHEUMATOID ARTHRITIS
     Dosage: UNK
     Dates: end: 2010

REACTIONS (4)
  - Therapeutic response decreased [Recovered/Resolved]
  - Rheumatoid arthritis [Not Recovered/Not Resolved]
  - Injection site pain [Not Recovered/Not Resolved]
  - Pain [Recovered/Resolved]
